FAERS Safety Report 13469629 (Version 8)
Quarter: 2019Q2

REPORT INFORMATION
  Report Type: Report from Study
  Country: JP (occurrence: JP)
  Receive Date: 20170422
  Receipt Date: 20190410
  Transmission Date: 20190711
  Serious: Yes (Death, Life-Threatening, Hospitalization, Other)
  Sender: FDA-Public Use
  Company Number: JP-ROCHE-1922895

PATIENT
  Age: 20 Year
  Sex: Female
  Weight: 53 kg

DRUGS (45)
  1. TACROLIMUS HYDRATE [Suspect]
     Active Substance: TACROLIMUS
     Route: 048
     Dates: start: 20161026, end: 20161031
  2. PREDONINE [Suspect]
     Active Substance: PREDNISOLONE
     Indication: LIVER TRANSPLANT
     Dosage: THE FRACTIONATION DOSE FREQUENCY IS UNCERTAIN.
     Route: 048
     Dates: start: 20161107, end: 20161111
  3. PREDONINE [Suspect]
     Active Substance: PREDNISOLONE
     Indication: LIVER TRANSPLANT
     Dosage: THE FRACTIONATION DOSE FREQUENCY IS UNCERTAIN.
     Route: 048
     Dates: start: 20161127, end: 20161129
  4. RITUXIMAB. [Suspect]
     Active Substance: RITUXIMAB
     Indication: PROPHYLAXIS AGAINST TRANSPLANT REJECTION
  5. SOL-MELCORT [Suspect]
     Active Substance: METHYLPREDNISOLONE SODIUM SUCCINATE
     Indication: LIVER TRANSPLANT
     Dosage: THE FRACTIONATION DOSE FREQUENCY IS UNCERTAIN.
     Route: 042
     Dates: start: 20161018, end: 20161018
  6. SOL-MELCORT [Suspect]
     Active Substance: METHYLPREDNISOLONE SODIUM SUCCINATE
     Dosage: THE FRACTIONATION DOSE FREQUENCY IS UNCERTAIN.
     Route: 022
     Dates: start: 20161110, end: 20161110
  7. SOL-MELCORT [Suspect]
     Active Substance: METHYLPREDNISOLONE SODIUM SUCCINATE
     Route: 042
     Dates: start: 20161114, end: 20161116
  8. TACROLIMUS HYDRATE [Suspect]
     Active Substance: TACROLIMUS
     Route: 048
     Dates: start: 20170114, end: 20170404
  9. PREDONINE [Suspect]
     Active Substance: PREDNISOLONE
     Indication: LIVER TRANSPLANT
     Dosage: THE FRACTIONATION DOSE FREQUENCY IS UNCERTAIN.
     Route: 048
     Dates: start: 20161124, end: 20161126
  10. PREDONINE [Suspect]
     Active Substance: PREDNISOLONE
     Indication: LIVER TRANSPLANT
     Dosage: THE FRACTIONATION DOSE FREQUENCY IS UNCERTAIN.
     Route: 048
     Dates: start: 20170316
  11. BAKTAR [Concomitant]
     Active Substance: SULFAMETHOXAZOLE\TRIMETHOPRIM
     Indication: INFECTION PROPHYLAXIS
     Dosage: TWICE
     Route: 048
     Dates: start: 20161019
  12. OXYTETRACYCLINE HYDROCHLORIDE/POLYMYXIN B SULFATE [Concomitant]
     Dosage: 3 MILLIONS
     Route: 048
     Dates: start: 20161011, end: 20161011
  13. RITUXIMAB. [Suspect]
     Active Substance: RITUXIMAB
     Indication: LIVER TRANSPLANT
     Dosage: MOST RECENT DOSE ON 04/OCT/2016.
     Route: 042
     Dates: start: 20161004
  14. MYCOPHENOLATE MOFETIL. [Suspect]
     Active Substance: MYCOPHENOLATE MOFETIL
     Indication: PROPHYLAXIS AGAINST TRANSPLANT REJECTION
     Dosage: THE FRACTIONATION DOSE FREQUENCY IS UNCERTAIN. ?DOSE INTERVAL UNCERTAINTY
     Route: 048
     Dates: start: 20170106, end: 20170116
  15. SOL-MELCORT [Suspect]
     Active Substance: METHYLPREDNISOLONE SODIUM SUCCINATE
     Indication: LIVER TRANSPLANT
     Dosage: THE FRACTIONATION DOSE FREQUENCY IS UNCERTAIN.
     Route: 042
     Dates: start: 20161019, end: 20161021
  16. SOL-MELCORT [Suspect]
     Active Substance: METHYLPREDNISOLONE SODIUM SUCCINATE
     Dosage: THE FRACTIONATION DOSE FREQUENCY IS UNCERTAIN.
     Route: 042
     Dates: start: 20161110, end: 20161110
  17. TACROLIMUS HYDRATE [Suspect]
     Active Substance: TACROLIMUS
     Route: 048
     Dates: start: 20161101, end: 20161108
  18. PREDONINE [Suspect]
     Active Substance: PREDNISOLONE
     Indication: LIVER TRANSPLANT
     Dosage: THE FRACTIONATION DOSE FREQUENCY IS UNCERTAIN.
     Route: 048
     Dates: start: 20161203, end: 20161205
  19. MYCOPHENOLATE MOFETIL. [Suspect]
     Active Substance: MYCOPHENOLATE MOFETIL
     Dosage: THE FRACTIONATION DOSE FREQUENCY IS UNCERTAIN. ?DOSE INTERVAL UNCERTAINTY
     Route: 048
     Dates: start: 20170117
  20. SOL-MELCORT [Suspect]
     Active Substance: METHYLPREDNISOLONE SODIUM SUCCINATE
     Dosage: THE FRACTIONATION DOSE FREQUENCY IS UNCERTAIN.
     Route: 042
     Dates: start: 20161114, end: 20161116
  21. SOL-MELCORT [Suspect]
     Active Substance: METHYLPREDNISOLONE SODIUM SUCCINATE
     Route: 042
     Dates: start: 20161117, end: 20161117
  22. TACROLIMUS HYDRATE [Suspect]
     Active Substance: TACROLIMUS
     Route: 048
     Dates: start: 20161109, end: 20161112
  23. TACROLIMUS HYDRATE [Suspect]
     Active Substance: TACROLIMUS
     Route: 048
     Dates: start: 20161213, end: 20170113
  24. PREDONINE [Suspect]
     Active Substance: PREDNISOLONE
     Indication: LIVER TRANSPLANT
     Dosage: THE FRACTIONATION DOSE FREQUENCY IS UNCERTAIN.
     Route: 048
     Dates: start: 20161026, end: 20161029
  25. PREDONINE [Suspect]
     Active Substance: PREDNISOLONE
     Indication: LIVER TRANSPLANT
     Dosage: THE FRACTIONATION DOSE FREQUENCY IS UNCERTAIN.
     Route: 048
     Dates: start: 20161030, end: 20161102
  26. PREDONINE [Suspect]
     Active Substance: PREDNISOLONE
     Indication: LIVER TRANSPLANT
     Dosage: THE FRACTIONATION DOSE FREQUENCY IS UNCERTAIN.
     Route: 048
     Dates: start: 20161103, end: 20161106
  27. TACROLIMUS HYDRATE [Suspect]
     Active Substance: TACROLIMUS
     Route: 048
     Dates: start: 20161113, end: 20161212
  28. THYMOGLOBULINE [Concomitant]
     Active Substance: LAPINE T-LYMPHOCYTE IMMUNE GLOBULIN
     Route: 042
     Dates: start: 20161118, end: 20161120
  29. VALTREX [Concomitant]
     Active Substance: VALACYCLOVIR HYDROCHLORIDE
     Indication: INFECTION PROPHYLAXIS
     Route: 048
     Dates: start: 20161019, end: 20161115
  30. VALTREX [Concomitant]
     Active Substance: VALACYCLOVIR HYDROCHLORIDE
     Route: 048
     Dates: start: 20161226
  31. SOL-MELCORT [Suspect]
     Active Substance: METHYLPREDNISOLONE SODIUM SUCCINATE
     Dosage: THE FRACTIONATION DOSE FREQUENCY IS UNCERTAIN.
     Route: 042
     Dates: start: 20161118, end: 20161120
  32. SOL-MELCORT [Suspect]
     Active Substance: METHYLPREDNISOLONE SODIUM SUCCINATE
     Dosage: THE FRACTIONATION DOSE FREQUENCY IS UNCERTAIN.
     Route: 042
     Dates: start: 20161121, end: 20161123
  33. SOL-MELCORT [Suspect]
     Active Substance: METHYLPREDNISOLONE SODIUM SUCCINATE
     Dosage: MOST RCENT DOSE ON 20/NOV/2016.
     Route: 042
     Dates: start: 20161118
  34. POLYMYXIN B SULFATE. [Concomitant]
     Active Substance: POLYMYXIN B SULFATE
     Dosage: 3 MILLIONS
     Route: 048
     Dates: start: 20161011, end: 20161011
  35. SOL-MELCORT [Suspect]
     Active Substance: METHYLPREDNISOLONE SODIUM SUCCINATE
     Dosage: THE FRACTIONATION DOSE FREQUENCY IS UNCERTAIN.
     Route: 042
     Dates: start: 20161022, end: 20161025
  36. SOL-MELCORT [Suspect]
     Active Substance: METHYLPREDNISOLONE SODIUM SUCCINATE
     Dosage: THE FRACTIONATION DOSE FREQUENCY IS UNCERTAIN.
     Route: 042
     Dates: start: 20161111, end: 20161113
  37. TACROLIMUS HYDRATE [Suspect]
     Active Substance: TACROLIMUS
     Indication: LIVER TRANSPLANT
     Dosage: DOSAGE IS UNCERTAIN.
     Route: 048
     Dates: start: 20161014, end: 20161020
  38. TACROLIMUS HYDRATE [Suspect]
     Active Substance: TACROLIMUS
     Indication: PROPHYLAXIS AGAINST TRANSPLANT REJECTION
     Route: 048
     Dates: start: 20161021, end: 20161025
  39. PREDONINE [Suspect]
     Active Substance: PREDNISOLONE
     Indication: LIVER TRANSPLANT
     Dosage: THE FRACTIONATION DOSE FREQUENCY IS UNCERTAIN.
     Route: 048
     Dates: start: 20161130, end: 20161202
  40. PREDONINE [Suspect]
     Active Substance: PREDNISOLONE
     Indication: LIVER TRANSPLANT
     Dosage: THE FRACTIONATION DOSE FREQUENCY IS UNCERTAIN.
     Route: 048
     Dates: start: 20161206, end: 20161210
  41. SAXIZON [Concomitant]
     Active Substance: HYDROCORTISONE SODIUM SUCCINATE
     Route: 065
     Dates: start: 20161004, end: 20161004
  42. MYCOPHENOLATE MOFETIL. [Suspect]
     Active Substance: MYCOPHENOLATE MOFETIL
     Indication: LIVER TRANSPLANT
     Dosage: THE FRACTIONATION DOSE FREQUENCY IS UNCERTAIN. ?DOSE INTERVAL UNCERTAINTY
     Route: 048
     Dates: start: 20161006, end: 20161017
  43. PREDONINE [Suspect]
     Active Substance: PREDNISOLONE
     Indication: LIVER TRANSPLANT
     Dosage: THE FRACTIONATION DOSE FREQUENCY IS UNCERTAIN.
     Route: 048
     Dates: start: 20161211, end: 20170315
  44. POLARAMINE [Concomitant]
     Active Substance: DEXCHLORPHENIRAMINE MALEATE
     Route: 042
     Dates: start: 20161004, end: 20161004
  45. ITRACONAZOLE. [Concomitant]
     Active Substance: ITRACONAZOLE
     Indication: INFECTION PROPHYLAXIS
     Route: 065
     Dates: start: 20161006, end: 20161017

REACTIONS (4)
  - Cholangitis [Not Recovered/Not Resolved]
  - Pseudomonas infection [Unknown]
  - Diarrhoea [Unknown]
  - Cytomegalovirus infection [Recovering/Resolving]

NARRATIVE: CASE EVENT DATE: 20161116
